FAERS Safety Report 8640578 (Version 2)
Quarter: 2012Q4

REPORT INFORMATION
  Report Type: 
  Country: MX (occurrence: MX)
  Receive Date: 20120628
  Receipt Date: 20120831
  Transmission Date: 20130627
  Serious: Yes (Hospitalization, Other)
  Sender: FDA-Public Use
  Company Number: PHHY2012MX053969

PATIENT
  Age: 72 Year
  Sex: Female

DRUGS (3)
  1. EXELON PATCH [Suspect]
     Indication: DEMENTIA ALZHEIMER^S TYPE
     Dosage: 4.6 mg, per day (5cm2/4.6 mg)
     Route: 062
     Dates: start: 201111
  2. EXELON PATCH [Suspect]
     Dosage: 9.5 mg, per day
     Route: 062
  3. CAROVOLAY [Concomitant]
     Indication: DEPRESSION

REACTIONS (3)
  - Haemorrhage [Not Recovered/Not Resolved]
  - Respiratory arrest [Recovered/Resolved]
  - Haematemesis [Recovered/Resolved]
